FAERS Safety Report 5735876-9 (Version None)
Quarter: 2008Q2

REPORT INFORMATION
  Report Type: 
  Country: None (occurrence: None)
  Receive Date: 20080513
  Receipt Date: 20080502
  Transmission Date: 20081010
  Serious: Yes (Hospitalization)
  Sender: FDA-Public Use
  Company Number: DE-JNJFOC-20080103721

PATIENT
  Age: 48 Year
  Sex: Male
  Weight: 70 kg

DRUGS (5)
  1. REMICADE [Suspect]
     Route: 042
  2. REMICADE [Suspect]
     Route: 042
  3. REMICADE [Suspect]
     Indication: PSORIASIS
     Route: 042
  4. PREDNISOLON [Concomitant]
     Route: 042
  5. DERMOXIN [Concomitant]
     Route: 061

REACTIONS (6)
  - COLITIS [None]
  - HELICOBACTER INFECTION [None]
  - PULMONARY HILUM MASS [None]
  - PYREXIA [None]
  - RECTAL POLYP [None]
  - SINUSITIS [None]
